FAERS Safety Report 13422860 (Version 1)
Quarter: 2017Q2

REPORT INFORMATION
  Report Type: Report from Study
  Country: US (occurrence: US)
  Receive Date: 20170410
  Receipt Date: 20170410
  Transmission Date: 20170830
  Serious: No
  Sender: FDA-Public Use
  Company Number: US-AMGEN-USASL2017049969

PATIENT
  Age: 60 Year
  Sex: Female

DRUGS (4)
  1. SIMPONI [Concomitant]
     Active Substance: GOLIMUMAB
  2. ENBREL [Suspect]
     Active Substance: ETANERCEPT
     Dosage: 25 MG, 2 TIMES/WK
     Route: 065
  3. ENBREL [Suspect]
     Active Substance: ETANERCEPT
     Indication: RHEUMATOID ARTHRITIS
     Dosage: UNK
     Route: 065
  4. ENBREL [Suspect]
     Active Substance: ETANERCEPT
     Dosage: UNK
     Route: 065

REACTIONS (4)
  - Unevaluable event [Unknown]
  - Feeling abnormal [Unknown]
  - Injection site bruising [Unknown]
  - Wrong technique in product usage process [Unknown]
